FAERS Safety Report 9384141 (Version 1)
Quarter: 2013Q3

REPORT INFORMATION
  Report Type: Spontaneous
  Country: US (occurrence: None)
  Receive Date: 20130702
  Receipt Date: 20130702
  Transmission Date: 20140515
  Serious: Yes (Hospitalization)
  Sender: FDA-Public Use
  Company Number: None

PATIENT
  Age: 58 Year
  Sex: Male
  Weight: 83.92 kg

DRUGS (1)
  1. SULFAMETH RX# 1965704-02856 [Suspect]
     Indication: LABYRINTHITIS
     Dosage: 800 2X DAILY ORAL
     Route: 048
     Dates: start: 20130610

REACTIONS (4)
  - Haemorrhage [None]
  - Penile swelling [None]
  - Skin discolouration [None]
  - Erythema [None]
